FAERS Safety Report 9328943 (Version 1)
Quarter: 2013Q2

REPORT INFORMATION
  Report Type: Spontaneous
  Country: US (occurrence: None)
  Receive Date: 20130531
  Receipt Date: 20130531
  Transmission Date: 20140414
  Serious: Yes (Other)
  Sender: FDA-Public Use
  Company Number: CA-ALSI-201300125

PATIENT
  Age: 31 Year
  Sex: Female
  Weight: 84 kg

DRUGS (2)
  1. NITROUS OXIDE [Suspect]
     Dosage: RESPIRATORY
  2. OXYGEN [Suspect]
     Dosage: RESPIRATORY

REACTIONS (2)
  - Dyspnoea [None]
  - Rhinitis [None]
